FAERS Safety Report 6697385-2 (Version None)
Quarter: 2010Q2

REPORT INFORMATION
  Report Type: 
  Country: None (occurrence: None)
  Receive Date: 20100422
  Receipt Date: 20100415
  Transmission Date: 20101027
  Serious: Yes (Death, Life-Threatening)
  Sender: FDA-Public Use
  Company Number: TPA2010A02212

PATIENT
  Age: 40 Year
  Sex: Female
  Weight: 45.3597 kg

DRUGS (4)
  1. ROZEREM [Suspect]
     Indication: DRUG USE FOR UNKNOWN INDICATION
     Dosage: 8 MG, PER ORAL
     Route: 048
  2. LORAZEPAM [Concomitant]
  3. DIAZEPAM [Concomitant]
  4. HYDROMORPHONE HCL [Concomitant]

REACTIONS (3)
  - GUN SHOT WOUND [None]
  - INTENTIONAL OVERDOSE [None]
  - VICTIM OF HOMICIDE [None]
